FAERS Safety Report 5593908-5 (Version None)
Quarter: 2007Q4

REPORT INFORMATION
  Report Type: 
  Country: None (occurrence: None)
  Receive Date: 20071218
  Receipt Date: 20070808
  Transmission Date: 20080405
  Serious: Yes (Hospitalization, Other)
  Sender: FDA-Public Use
  Company Number: 2007046792

PATIENT
  Age: 61 Year
  Weight: 125.6 kg

DRUGS (1)
  1. BEXTRA [Suspect]
     Indication: OSTEOARTHRITIS
     Dosage: 20 MG (20 MG, IN 1 D), ORAL
     Route: 048
     Dates: start: 20030515

REACTIONS (1)
  - MYOCARDIAL INFARCTION [None]
